FAERS Safety Report 22530159 (Version 1)
Quarter: 2023Q2

REPORT INFORMATION
  Report Type: Report from Study
  Country: US (occurrence: US)
  Receive Date: 20230607
  Receipt Date: 20230607
  Transmission Date: 20230722
  Serious: Yes (Other)
  Sender: FDA-Public Use
  Company Number: US-MYLANLABS-2023M1058209

PATIENT
  Age: 78 Year
  Sex: Male

DRUGS (2)
  1. IMATINIB [Suspect]
     Active Substance: IMATINIB
     Indication: Metastatic malignant melanoma
     Dosage: 400 MILLIGRAM, QD
     Route: 065
  2. IMATINIB [Suspect]
     Active Substance: IMATINIB
     Indication: Gene mutation

REACTIONS (3)
  - Drug ineffective for unapproved indication [Unknown]
  - Off label use [Unknown]
  - Disease progression [Unknown]
